FAERS Safety Report 4302351-8 (Version None)
Quarter: 2004Q1

REPORT INFORMATION
  Report Type: 
  Country: None (occurrence: None)
  Receive Date: 20040220
  Receipt Date: 20040130
  Transmission Date: 20041129
  Serious: Yes (Hospitalization)
  Sender: FDA-Public Use
  Company Number: A03200400320

PATIENT
  Age: 51 Year
  Sex: Female

DRUGS (4)
  1. ELOXATIN [Suspect]
     Indication: COLORECTAL CANCER METASTATIC
     Dosage: 200 MG Q2W - INTRAVENOUS NOS
     Route: 042
     Dates: start: 20031217, end: 20031217
  2. FLUOROURACIL [Concomitant]
  3. LEUCOVORIN [Concomitant]
  4. DEXAMETHASONE [Concomitant]

REACTIONS (3)
  - CONFUSIONAL STATE [None]
  - DRUG SCREEN POSITIVE [None]
  - REFUSAL OF TREATMENT BY PATIENT [None]
